FAERS Safety Report 6348568-2 (Version None)
Quarter: 2009Q3

REPORT INFORMATION
  Report Type: 
  Country: None (occurrence: None)
  Receive Date: 20090911
  Receipt Date: 20090907
  Transmission Date: 20100115
  Serious: Yes (Death, Other)
  Sender: FDA-Public Use
  Company Number: JP-SANOFI-SYNTHELABO-A01200909331

PATIENT
  Sex: Male

DRUGS (21)
  1. ONDANSETRON [Concomitant]
     Route: 065
     Dates: start: 20081007, end: 20090227
  2. PURSENNID [Concomitant]
     Route: 065
     Dates: start: 20080828, end: 20090705
  3. BLOPRESS [Concomitant]
     Route: 065
     Dates: start: 20080801, end: 20090630
  4. AMLODIPINE [Concomitant]
     Route: 065
     Dates: start: 20080801, end: 20081101
  5. ELPLAT [Suspect]
     Indication: RECTAL CANCER METASTATIC
     Route: 041
     Dates: start: 20090130, end: 20090227
  6. HALCION [Concomitant]
     Route: 065
     Dates: end: 20090705
  7. PREDONINE [Suspect]
     Route: 048
     Dates: start: 20090701, end: 20090702
  8. RINDERON [Suspect]
  9. ERBITUX [Suspect]
     Indication: RECTAL CANCER METASTATIC
     Route: 041
     Dates: start: 20090317, end: 20090602
  10. LOXONIN [Suspect]
     Indication: PAIN PROPHYLAXIS
     Route: 048
     Dates: start: 20081021, end: 20090615
  11. DECADRON [Suspect]
     Route: 041
     Dates: start: 20081007, end: 20090602
  12. IRINOTECAN HYDROCHLORIDE [Suspect]
     Indication: RECTAL CANCER METASTATIC
     Route: 041
     Dates: start: 20081007, end: 20090424
  13. TS-1 [Suspect]
     Indication: RECTAL CANCER METASTATIC
     Route: 048
     Dates: start: 20081007, end: 20081027
  14. LEVOFOLINATE [Suspect]
     Indication: RECTAL CANCER METASTATIC
     Route: 041
     Dates: start: 20090130, end: 20090227
  15. AVASTIN [Suspect]
     Indication: RECTAL CANCER METASTATIC
     Route: 042
     Dates: start: 20081007, end: 20090227
  16. FLUOROURACIL [Suspect]
     Indication: RECTAL CANCER METASTATIC
     Route: 041
     Dates: start: 20090130, end: 20090227
  17. GASTER [Concomitant]
     Route: 065
     Dates: start: 20081021, end: 20090701
  18. MUCOSTA [Concomitant]
     Route: 065
     Dates: start: 20081021, end: 20090629
  19. WAKADENIN [Concomitant]
     Route: 065
     Dates: start: 20081001, end: 20081101
  20. VITAMEDIN [Concomitant]
     Route: 065
     Dates: start: 20081001, end: 20081101
  21. VOLTAREN [Suspect]
     Route: 065
     Dates: start: 20090616, end: 20090629

REACTIONS (7)
  - DECREASED APPETITE [None]
  - GASTRIC ULCER HAEMORRHAGE [None]
  - NAUSEA [None]
  - NEUROPATHY PERIPHERAL [None]
  - NEUTROPHIL COUNT DECREASED [None]
  - PLATELET COUNT DECREASED [None]
  - WHITE BLOOD CELL COUNT DECREASED [None]
